FAERS Safety Report 4618576-8 (Version None)
Quarter: 2005Q1

REPORT INFORMATION
  Report Type: 
  Country: None (occurrence: None)
  Receive Date: 20050323
  Receipt Date: 20050309
  Transmission Date: 20050727
  Serious: Yes (Other)
  Sender: FDA-Public Use
  Company Number: NL-2005-003531

PATIENT
  Sex: 0

DRUGS (1)
  1. FLUDARA         IV                (FLUDARABINE PHOSPHATE) [Suspect]
     Route: 042

REACTIONS (1)
  - PEMPHIGUS [None]
